FAERS Safety Report 18852733 (Version 1)
Quarter: 2021Q1

REPORT INFORMATION
  Report Type: Spontaneous
  Country: PT (occurrence: PT)
  Receive Date: 20210205
  Receipt Date: 20210205
  Transmission Date: 20210420
  Serious: Yes (Hospitalization)
  Sender: FDA-Public Use
  Company Number: NVSC2021PT017669

PATIENT
  Age: 78 Year
  Sex: Female
  Weight: 41 kg

DRUGS (24)
  1. PIPERACILLIN. [Concomitant]
     Active Substance: PIPERACILLIN SODIUM
     Indication: FEBRILE NEUTROPENIA
     Dosage: UNK
     Route: 065
     Dates: start: 20180824, end: 20180831
  2. TAZOBACTAM [Concomitant]
     Active Substance: TAZOBACTAM
     Indication: FEBRILE NEUTROPENIA
  3. PARACETAMOL [Concomitant]
     Active Substance: ACETAMINOPHEN
     Indication: ESCHERICHIA BACTERAEMIA
     Dosage: UNK
     Route: 065
     Dates: start: 20180824, end: 20180831
  4. BISACODYL. [Concomitant]
     Active Substance: BISACODYL
     Indication: PRODUCT USED FOR UNKNOWN INDICATION
     Dosage: UNK
     Route: 065
     Dates: start: 20180612, end: 20180828
  5. HUMAN ALBUMIN [Concomitant]
     Active Substance: ALBUMIN HUMAN
     Indication: FEBRILE NEUTROPENIA
  6. ALPRAZOLAM. [Concomitant]
     Active Substance: ALPRAZOLAM
     Indication: PRODUCT USED FOR UNKNOWN INDICATION
     Dosage: UNK
     Route: 065
     Dates: start: 20180407, end: 20180828
  7. TAZOBACTAM [Concomitant]
     Active Substance: TAZOBACTAM
     Indication: ESCHERICHIA BACTERAEMIA
     Dosage: UNK
     Route: 065
     Dates: start: 20180824, end: 20180831
  8. ENALAPRIL [Concomitant]
     Active Substance: ENALAPRIL
     Indication: PRODUCT USED FOR UNKNOWN INDICATION
     Dosage: UNK
     Route: 065
     Dates: start: 20170115, end: 20180828
  9. PIPERACILLIN. [Concomitant]
     Active Substance: PIPERACILLIN SODIUM
     Indication: ESCHERICHIA BACTERAEMIA
  10. HYDROXYZINE [Concomitant]
     Active Substance: HYDROXYZINE HYDROCHLORIDE
     Indication: FEBRILE NEUTROPENIA
     Dosage: UNK
     Route: 065
     Dates: start: 20180824, end: 20180830
  11. HYDROXYZINE [Concomitant]
     Active Substance: HYDROXYZINE HYDROCHLORIDE
     Indication: ESCHERICHIA BACTERAEMIA
  12. CEFUROXIME. [Concomitant]
     Active Substance: CEFUROXIME
     Indication: FEBRILE NEUTROPENIA
  13. BISACODYL. [Concomitant]
     Active Substance: BISACODYL
     Dosage: UNK
     Route: 065
     Dates: start: 20180911, end: 20180916
  14. PARACETAMOL [Concomitant]
     Active Substance: ACETAMINOPHEN
     Indication: FEBRILE NEUTROPENIA
  15. CEFUROXIME. [Concomitant]
     Active Substance: CEFUROXIME
     Indication: ESCHERICHIA BACTERAEMIA
     Dosage: UNK
     Route: 065
     Dates: start: 20180831, end: 20180904
  16. HUMAN ALBUMIN [Concomitant]
     Active Substance: ALBUMIN HUMAN
     Indication: ESCHERICHIA BACTERAEMIA
     Dosage: UNK
     Route: 065
     Dates: start: 20180828, end: 20180831
  17. FILGRASTIM [Concomitant]
     Active Substance: FILGRASTIM
     Indication: ESCHERICHIA BACTERAEMIA
  18. OTILONIUM BROMIDE [Concomitant]
     Active Substance: OTILONIUM BROMIDE
     Indication: PRODUCT USED FOR UNKNOWN INDICATION
     Dosage: UNK
     Route: 065
     Dates: start: 20170607, end: 20180828
  19. PREGABALIN. [Concomitant]
     Active Substance: PREGABALIN
     Dosage: UNK
     Route: 065
     Dates: start: 20180911, end: 20180916
  20. METAMIZOLE [Concomitant]
     Active Substance: METAMIZOLE
     Indication: PRODUCT USED FOR UNKNOWN INDICATION
     Dosage: UNK
     Route: 065
     Dates: start: 20180521, end: 20180828
  21. DOCETAXEL. [Suspect]
     Active Substance: DOCETAXEL
     Indication: BREAST CANCER
     Dosage: 100 MG/M2, TIW (MOST RECENT DOSE ON 09 SEP 2018)
     Route: 042
     Dates: start: 20180608, end: 20180909
  22. VITERNUM [Concomitant]
     Indication: PRODUCT USED FOR UNKNOWN INDICATION
     Dosage: UNK
     Route: 065
     Dates: start: 20180607, end: 20180828
  23. FILGRASTIM [Concomitant]
     Active Substance: FILGRASTIM
     Indication: FEBRILE NEUTROPENIA
     Dosage: UNK
     Route: 065
     Dates: start: 20180824, end: 20180828
  24. PREGABALIN. [Concomitant]
     Active Substance: PREGABALIN
     Indication: PRODUCT USED FOR UNKNOWN INDICATION
     Dosage: UNK
     Route: 065
     Dates: start: 20180612, end: 20180828

REACTIONS (2)
  - Neuropathy peripheral [Recovering/Resolving]
  - Disease progression [Not Recovered/Not Resolved]

NARRATIVE: CASE EVENT DATE: 20180906
